FAERS Safety Report 6726730-4 (Version None)
Quarter: 2010Q2

REPORT INFORMATION
  Report Type: 
  Country: None (occurrence: None)
  Receive Date: 20100514
  Receipt Date: 20100507
  Transmission Date: 20101027
  Serious: Yes (Hospitalization)
  Sender: FDA-Public Use
  Company Number: US-ROCHE-702293

PATIENT
  Sex: Male
  Weight: 70 kg

DRUGS (11)
  1. PEGINTERFERON ALFA-2A [Suspect]
     Dosage: UNITS REPORTED: MCG, DATE OF LAST DOSE PRIOR TO SAE: 21 FEBRUARY 2010
     Route: 058
     Dates: start: 20081228
  2. RIBAVIRIN [Suspect]
     Dosage: DATE OF LAST DOSE PRIOR TO SAE: 28 FEBRUARY 2010
     Route: 048
     Dates: start: 20081228
  3. ZOLOFT [Concomitant]
     Indication: ANTIDEPRESSANT THERAPY
     Dates: start: 20000101
  4. LISINOPRIL [Concomitant]
     Dosage: FREQUENCY: DAILY
  5. METOPROLOL SUCCINATE [Concomitant]
  6. MULTIVITAMIN NOS [Concomitant]
     Dosage: FREQUENCY: DAILY
  7. PLAVIX [Concomitant]
  8. UROXATRAL [Concomitant]
     Dosage: DRUG REPORTED AS URAXOTRAL
  9. ALLOPURINOL [Concomitant]
     Dosage: FREQUENCY REPORTED AS DAILY
  10. TYLENOL (CAPLET) [Concomitant]
  11. ZOFRAN [Concomitant]

REACTIONS (1)
  - MENTAL DISORDER [None]
